FAERS Safety Report 15167181 (Version 1)
Quarter: 2018Q3

REPORT INFORMATION
  Report Type: Spontaneous
  Country: US (occurrence: US)
  Receive Date: 20180621
  Receipt Date: 20180621
  Transmission Date: 20181010
  Serious: Yes (Disabling)
  Sender: FDA-Public Use
  Company Number: None

PATIENT
  Age: 67 Year
  Sex: Female
  Weight: 51.3 kg

DRUGS (18)
  1. MAGNESIUM [Concomitant]
     Active Substance: MAGNESIUM
  2. COENZYME Q10 [Concomitant]
     Active Substance: UBIDECARENONE
  3. MULTIVITAMINS WOMEN^S 50+ [Concomitant]
  4. ATOROVASTAN [Concomitant]
  5. FEMRING [Concomitant]
     Active Substance: ESTRADIOL ACETATE
  6. LORAZEPAM. [Concomitant]
     Active Substance: LORAZEPAM
  7. TYLENOL [Concomitant]
     Active Substance: ACETAMINOPHEN
  8. LANSOPRAZOLE. [Concomitant]
     Active Substance: LANSOPRAZOLE
  9. FLEXERIL [Concomitant]
     Active Substance: CYCLOBENZAPRINE HYDROCHLORIDE
  10. LAMOTRIGINE TAB 150MG [Suspect]
     Active Substance: LAMOTRIGINE
     Indication: SIMPLE PARTIAL SEIZURES
     Dosage: ?          QUANTITY:1 TABLET(S);?
     Route: 048
     Dates: start: 20180620, end: 20180621
  11. ECOTRIN [Concomitant]
     Active Substance: ASPIRIN
  12. FOLIC ACID. [Concomitant]
     Active Substance: FOLIC ACID
  13. SAVELLA [Concomitant]
     Active Substance: MILNACIPRAN HYDROCHLORIDE
  14. CALCIUM [Concomitant]
     Active Substance: CALCIUM
  15. BIOTIN [Concomitant]
     Active Substance: BIOTIN
  16. OMEGA 3 FATTY ACIDS [Concomitant]
     Active Substance: OMEGA-3 FATTY ACIDS
  17. MELOXICAM. [Concomitant]
     Active Substance: MELOXICAM
  18. VALSARTAN. [Concomitant]
     Active Substance: VALSARTAN

REACTIONS (6)
  - Slow speech [None]
  - Product substitution issue [None]
  - Somnolence [None]
  - Headache [None]
  - Nausea [None]
  - Ataxia [None]

NARRATIVE: CASE EVENT DATE: 20180620
